FAERS Safety Report 21686133 (Version 1)
Quarter: 2022Q4

REPORT INFORMATION
  Report Type: Spontaneous
  Country: US (occurrence: US)
  Receive Date: 20221206
  Receipt Date: 20221206
  Transmission Date: 20230112
  Serious: No
  Sender: FDA-Public Use
  Company Number: US-SANOFI-01389818

PATIENT
  Age: 78 Year
  Sex: Male

DRUGS (1)
  1. DUPIXENT [Suspect]
     Active Substance: DUPILUMAB
     Indication: Eczema
     Dosage: 2 DF, 1X
     Dates: start: 20221130, end: 20221130

REACTIONS (3)
  - Fatigue [Unknown]
  - Cough [Unknown]
  - Hypersomnia [Unknown]

NARRATIVE: CASE EVENT DATE: 20221130
